FAERS Safety Report 4459699-6 (Version None)
Quarter: 2004Q3

REPORT INFORMATION
  Report Type: 
  Country: None (occurrence: None)
  Receive Date: 20040928
  Receipt Date: 20040920
  Transmission Date: 20050211
  Serious: Yes (Other)
  Sender: FDA-Public Use
  Company Number: US-JNJFOC-20040907017

PATIENT
  Sex: Female
  Weight: 57.61 kg

DRUGS (6)
  1. REMICADE [Suspect]
     Route: 042
  2. REMICADE [Suspect]
     Indication: CROHN'S DISEASE
     Route: 042
  3. COLAZOL [Concomitant]
     Indication: CROHN'S DISEASE
     Dosage: 2250
  4. LOPRESSOR [Concomitant]
     Dosage: IND
  5. AVAPRO [Concomitant]
     Dosage: IND
  6. SYNTHROID [Concomitant]
     Indication: HYPOTHYROIDISM
     Dosage: .75 IND

REACTIONS (4)
  - ASTHENIA [None]
  - BLOOD PRODUCT TRANSFUSION [None]
  - DIFFICULTY IN WALKING [None]
  - MUSCLE CRAMP [None]
